FAERS Safety Report 10244866 (Version 1)
Quarter: 2014Q2

REPORT INFORMATION
  Report Type: Report from Study
  Country: US (occurrence: US)
  Receive Date: 20140618
  Receipt Date: 20140618
  Transmission Date: 20141212
  Serious: Yes (Other)
  Sender: FDA-Public Use
  Company Number: US-ABBVIE-14P-163-1245709-00

PATIENT
  Sex: Male
  Weight: 56.3 kg

DRUGS (6)
  1. HUMIRA [Suspect]
     Indication: CROHN^S DISEASE
     Dates: start: 2010, end: 201004
  2. HUMIRA [Suspect]
     Indication: RHEUMATOID ARTHRITIS
     Dates: start: 2012, end: 2012
  3. HUMIRA [Suspect]
     Dates: start: 201402
  4. RESTORIL [Concomitant]
     Indication: INSOMNIA
  5. CYMBALTA [Concomitant]
     Indication: ANXIETY
  6. VITAMINS NOS [Concomitant]
     Indication: MALNUTRITION

REACTIONS (10)
  - Gastrointestinal inflammation [Recovered/Resolved]
  - Intestinal perforation [Recovered/Resolved]
  - Abdominal abscess [Recovered/Resolved]
  - Gastrointestinal inflammation [Recovered/Resolved]
  - Weight decreased [Recovered/Resolved]
  - Weight decreased [Recovered/Resolved]
  - Intestinal obstruction [Recovered/Resolved]
  - Vomiting [Recovered/Resolved]
  - Cholelithiasis [Recovered/Resolved]
  - Colon neoplasm [Recovered/Resolved]
